FAERS Safety Report 6908608-6 (Version None)
Quarter: 2010Q3

REPORT INFORMATION
  Report Type: 
  Country: None (occurrence: None)
  Receive Date: 20100805
  Receipt Date: 20100728
  Transmission Date: 20110219
  Serious: Yes (Hospitalization, Disabling, Other)
  Sender: FDA-Public Use
  Company Number: US-MERCK-0705USA01439

PATIENT
  Age: 36 Year
  Sex: Female
  Weight: 47 kg

DRUGS (3)
  1. FOSAMAX [Suspect]
     Indication: OSTEOPOROSIS
     Route: 048
     Dates: start: 20020101
  2. FOSAMAX [Suspect]
     Route: 048
     Dates: start: 20030707, end: 20050523
  3. BONIVA [Suspect]
     Indication: OSTEOPOROSIS
     Route: 065
     Dates: start: 20050523, end: 20060809

REACTIONS (97)
  - ABDOMINAL PAIN UPPER [None]
  - ACUTE RESPIRATORY FAILURE [None]
  - AMMONIA INCREASED [None]
  - ANAEMIA [None]
  - ANURIA [None]
  - ANXIETY [None]
  - ARTHRALGIA [None]
  - BACK PAIN [None]
  - CARDIAC ARREST [None]
  - CELLULITIS [None]
  - CHRONIC HEPATIC FAILURE [None]
  - CLAVICLE FRACTURE [None]
  - COAGULOPATHY [None]
  - CONVULSION [None]
  - COUGH [None]
  - DECUBITUS ULCER [None]
  - DEPRESSION [None]
  - DERMATITIS [None]
  - DIARRHOEA [None]
  - DRUG ABUSE [None]
  - DRUG ADMINISTRATION ERROR [None]
  - DYSPEPSIA [None]
  - EATING DISORDER [None]
  - ENCEPHALOPATHY [None]
  - EXTRAPYRAMIDAL DISORDER [None]
  - FACIAL PAIN [None]
  - FALL [None]
  - FOLATE DEFICIENCY [None]
  - GASTRIC HAEMORRHAGE [None]
  - GASTROINTESTINAL DISORDER [None]
  - GASTROINTESTINAL HAEMORRHAGE [None]
  - HAEMANGIOMA OF LIVER [None]
  - HAEMATOCHEZIA [None]
  - HAEMATOMA [None]
  - HEAD INJURY [None]
  - HEPATIC CIRRHOSIS [None]
  - HEPATIC ENCEPHALOPATHY [None]
  - HEPATITIS B [None]
  - HIATUS HERNIA [None]
  - HUMERUS FRACTURE [None]
  - HYPERBILIRUBINAEMIA [None]
  - HYPOKALAEMIA [None]
  - HYPONATRAEMIA [None]
  - HYPONATRAEMIC ENCEPHALOPATHY [None]
  - HYPOTENSION [None]
  - HYPOVOLAEMIA [None]
  - HYPOXIA [None]
  - INFLUENZA LIKE ILLNESS [None]
  - LIMB INJURY [None]
  - LIVER DISORDER [None]
  - LOSS OF CONSCIOUSNESS [None]
  - MALNUTRITION [None]
  - MASS [None]
  - MELAENA [None]
  - MEMORY IMPAIRMENT [None]
  - METABOLIC ALKALOSIS [None]
  - MICROCYTIC ANAEMIA [None]
  - MIGRAINE [None]
  - MOBILITY DECREASED [None]
  - MUSCLE SPASTICITY [None]
  - MYOCARDIAL INFARCTION [None]
  - NAUSEA [None]
  - NUTRITIONAL CONDITION ABNORMAL [None]
  - OEDEMA PERIPHERAL [None]
  - OESOPHAGEAL VARICES HAEMORRHAGE [None]
  - OESOPHAGITIS [None]
  - ORAL INFECTION [None]
  - OSTEOMYELITIS [None]
  - OSTEONECROSIS OF JAW [None]
  - OSTEOPENIA [None]
  - POOR DENTAL CONDITION [None]
  - PORTAL HYPERTENSIVE GASTROPATHY [None]
  - PSYCHOTIC DISORDER [None]
  - PULPITIS DENTAL [None]
  - PYELONEPHRITIS [None]
  - PYREXIA [None]
  - RECTAL HAEMORRHAGE [None]
  - RESTLESS LEGS SYNDROME [None]
  - RIB FRACTURE [None]
  - SELF-INDUCED VOMITING [None]
  - SINUSITIS [None]
  - SOMNAMBULISM [None]
  - SWELLING FACE [None]
  - THROMBOCYTOPENIA [None]
  - TOOTH LOSS [None]
  - TREATMENT NONCOMPLIANCE [None]
  - UPPER GASTROINTESTINAL HAEMORRHAGE [None]
  - URINARY TRACT INFECTION [None]
  - UROSEPSIS [None]
  - VARICES OESOPHAGEAL [None]
  - VENTRICULAR FIBRILLATION [None]
  - VITAMIN B12 DEFICIENCY [None]
  - VITAMIN D DEFICIENCY [None]
  - VOMITING [None]
  - WAIST CIRCUMFERENCE INCREASED [None]
  - WEIGHT DECREASED [None]
  - WOUND COMPLICATION [None]
